FAERS Safety Report 13257831 (Version 1)
Quarter: 2017Q1

REPORT INFORMATION
  Report Type: Spontaneous
  Country: US (occurrence: US)
  Receive Date: 20170221
  Receipt Date: 20170221
  Transmission Date: 20170428
  Serious: Yes (Death, Other)
  Sender: FDA-Public Use
  Company Number: US-GLAXOSMITHKLINE-US2017GSK024646

PATIENT
  Sex: Male

DRUGS (1)
  1. ANORO ELLIPTA [Suspect]
     Active Substance: UMECLIDINIUM BROMIDE\VILANTEROL TRIFENATATE
     Indication: PRODUCT USED FOR UNKNOWN INDICATION
     Dosage: UNK, U

REACTIONS (6)
  - Total lung capacity decreased [Unknown]
  - Death [Fatal]
  - Chronic obstructive pulmonary disease [Unknown]
  - Spinal column stenosis [Unknown]
  - Diabetes mellitus [Unknown]
  - Malaise [Unknown]

NARRATIVE: CASE EVENT DATE: 2015
